FAERS Safety Report 15107586 (Version 2)
Quarter: 2018Q3

REPORT INFORMATION
  Report Type: Spontaneous
  Country: IT (occurrence: IT)
  Receive Date: 20180704
  Receipt Date: 20180823
  Transmission Date: 20181010
  Serious: Yes (Other)
  Sender: FDA-Public Use
  Company Number: IT-TEVA-2018-IT-918533

PATIENT
  Age: 69 Year
  Sex: Female

DRUGS (6)
  1. METOPROLOL. [Suspect]
     Active Substance: METOPROLOL
     Indication: HYPERTENSION
     Route: 048
     Dates: start: 20180101, end: 20180310
  2. LANSOX [Concomitant]
     Active Substance: LANSOPRAZOLE
  3. KANRENOL [Concomitant]
     Active Substance: CANRENOATE POTASSIUM
  4. LOSARTAN. [Suspect]
     Active Substance: LOSARTAN
     Indication: HYPERTENSION
     Route: 048
     Dates: start: 20180101, end: 20180310
  5. TORVAST 40 MG COMPRESSE RIVESTITE CON FILM [Concomitant]
  6. CARDIOASPIRIN [Concomitant]
     Active Substance: ASPIRIN

REACTIONS (3)
  - Atrial fibrillation [Recovering/Resolving]
  - Palpitations [Recovering/Resolving]
  - Angina pectoris [Recovering/Resolving]

NARRATIVE: CASE EVENT DATE: 20180310
